FAERS Safety Report 6896550-9 (Version None)
Quarter: 2010Q3

REPORT INFORMATION
  Report Type: 
  Country: None (occurrence: None)
  Receive Date: 20100722
  Receipt Date: 20100707
  Transmission Date: 20110219
  Serious: Yes (Death)
  Sender: FDA-Public Use
  Company Number: GAM-150-10-US

PATIENT
  Age: 64 Year
  Sex: Male

DRUGS (13)
  1. OCTAGAM [Suspect]
     Indication: MYASTHENIA GRAVIS
     Dosage: 100GM Q3WKS, IV
     Route: 042
     Dates: start: 20100706, end: 20100706
  2. ASPIRIN [Concomitant]
  3. LIPITOR [Concomitant]
  4. NIFEDIPINE [Concomitant]
  5. AMARYL [Concomitant]
  6. AVANDIA (ROSIGLITAZONE MALEAT) [Concomitant]
  7. METFORMIN HCL [Concomitant]
  8. HYDROCHLOROTHIAZIDE [Concomitant]
  9. MESTINON (PYRIDOSTIGMINE) [Concomitant]
  10. VITAMIN B [Concomitant]
  11. TYLENON (ACETAMINOPHEN) [Concomitant]
  12. BENADRYL [Concomitant]
  13. SALINE [Concomitant]

REACTIONS (3)
  - INFUSION RELATED REACTION [None]
  - MYOCARDIAL INFARCTION [None]
  - UNRESPONSIVE TO STIMULI [None]
